FAERS Safety Report 7210422-1 (Version None)
Quarter: 2011Q1

REPORT INFORMATION
  Report Type: 
  Country: None (occurrence: None)
  Receive Date: 20110105
  Receipt Date: 20100430
  Transmission Date: 20110831
  Serious: Yes (Hospitalization, Other)
  Sender: FDA-Public Use
  Company Number: US-BAYER-200930579NA

PATIENT
  Sex: Female

DRUGS (9)
  1. KARIVA [Concomitant]
     Dosage: DISPENSED BY PHARMACY ON: 01-JAN-2008,06-FEB-2008,02-MAR-2008,04-APR-2008,01-MAY-2008,28-MAY-2008
     Dates: start: 20070801, end: 20080101
  2. YASMIN [Suspect]
     Indication: CONTRACEPTION
     Dates: start: 20080601
  3. ORTHO TRI-CYCLEN [Concomitant]
     Dosage: DRUG DISPENSED FROM PHARMACY ON 13-MAR-2006, 30-MAY-2006, 27-JUN-2006
     Dates: start: 20060313
  4. VIRAL VACCINES [Concomitant]
     Dosage: GARDESIL INJECTION OR IMMUNIZATION ONE MONTH PRIOR TO THE THROMBOTIC EVENT
  5. KARIVA [Concomitant]
     Dosage: DISPENSED BY PHARMACY ON:27-JUL-2007, 16-AUG-2007,10-SEP-2007,08-OCT-2007,14-NOV-2007,15-DEC-2007,
     Dates: start: 20070801, end: 20080101
  6. YAZ [Suspect]
     Indication: ACNE
  7. BALZIVA [Concomitant]
     Dosage: DISPENSED: 15-AUG-2006, 13-SEP-2006, 13-OCT-2006, 11-NOV-2006, 09-DEC-2006, 11-JAN-2007, 24-MAY-2007
     Dates: start: 20060815
  8. YAZ [Suspect]
     Indication: CONTRACEPTION
     Dosage: DISPENSED BY PHRARMACY ON: 19-JUN-2008
     Dates: start: 20080619, end: 20080718
  9. OVCON-35 [Concomitant]
     Dosage: DISPENSED BY PHARMACY ON 20-JUL-2006
     Dates: start: 20060720

REACTIONS (11)
  - PLEURISY [None]
  - ATELECTASIS [None]
  - PULMONARY VALVE INCOMPETENCE [None]
  - PULMONARY EMBOLISM [None]
  - PAIN [None]
  - DYSPNOEA [None]
  - PLEURAL EFFUSION [None]
  - MENTAL DISORDER [None]
  - TRICUSPID VALVE INCOMPETENCE [None]
  - PLEURITIC PAIN [None]
  - PULMONARY INFARCTION [None]
